FAERS Safety Report 12228363 (Version 1)
Quarter: 2016Q1

REPORT INFORMATION
  Report Type: Spontaneous
  Country: US (occurrence: None)
  Receive Date: 20160330
  Receipt Date: 20160330
  Transmission Date: 20160526
  Serious: Yes (Hospitalization, Disabling)
  Sender: FDA-Public Use
  Company Number: None

PATIENT
  Sex: Female
  Weight: 44.45 kg

DRUGS (5)
  1. SIMVASTATIN. [Suspect]
     Active Substance: SIMVASTATIN
     Dosage: 20MG ONE TAB DAILY AT BEDTIME?
     Route: 048
  2. RAMIPRIL. [Suspect]
     Active Substance: RAMIPRIL
     Route: 048
     Dates: end: 20140724
  3. CLOPIDOGREL [Suspect]
     Active Substance: CLOPIDOGREL BISULFATE
     Indication: CEREBROVASCULAR ACCIDENT PROPHYLAXIS
     Dosage: OCT 2015 27 FEB 2015 75 MG ONE TABLET DAILY
     Route: 048
     Dates: start: 201510
  4. SINEMET CR [Concomitant]
     Active Substance: CARBIDOPA\LEVODOPA
  5. METOPROLOL SUCC ER [Suspect]
     Active Substance: METOPROLOL SUCCINATE
     Route: 048

REACTIONS (9)
  - Balance disorder [None]
  - Gait disturbance [None]
  - Urinary incontinence [None]
  - Syncope [None]
  - Femur fracture [None]
  - Feeling abnormal [None]
  - Hip fracture [None]
  - Asthenia [None]
  - Seizure [None]
